FAERS Safety Report 4941650-3 (Version None)
Quarter: 2006Q1

REPORT INFORMATION
  Report Type: 
  Country: None (occurrence: None)
  Receive Date: 20060313
  Receipt Date: 20060202
  Transmission Date: 20060701
  Serious: Yes (Other)
  Sender: FDA-Public Use
  Company Number: US-ROCHE-435102

PATIENT
  Sex: Female

DRUGS (2)
  1. BONIVA [Suspect]
     Indication: OSTEOPOROSIS
     Route: 048
     Dates: start: 20060101
  2. VITAMIN NOS [Concomitant]
     Indication: MACULAR DEGENERATION
     Dosage: REPORTED AS EYE VITAMINS (NOS)
     Route: 048

REACTIONS (3)
  - HEAD INJURY [None]
  - MACULAR DEGENERATION [None]
  - UPPER LIMB FRACTURE [None]
